FAERS Safety Report 5730518-0 (Version None)
Quarter: 2008Q2

REPORT INFORMATION
  Report Type: 
  Country: None (occurrence: None)
  Receive Date: 20080507
  Receipt Date: 20080429
  Transmission Date: 20081010
  Serious: Yes (Hospitalization)
  Sender: FDA-Public Use
  Company Number: US-ABBOTT-08P-163-0449536-00

PATIENT
  Sex: Male
  Weight: 83.536 kg

DRUGS (8)
  1. HUMIRA [Suspect]
     Indication: CROHN'S DISEASE
     Route: 058
     Dates: start: 20080417, end: 20080417
  2. HUMIRA [Suspect]
     Route: 058
     Dates: start: 20080403, end: 20080403
  3. LIALDA [Concomitant]
     Indication: CROHN'S DISEASE
     Dosage: 2 TABS BID
     Route: 058
     Dates: start: 20080101
  4. PREDNISONE TAB [Concomitant]
     Indication: CROHN'S DISEASE
     Route: 048
     Dates: start: 20080101
  5. IRON [Concomitant]
     Indication: MINERAL SUPPLEMENTATION
     Route: 048
     Dates: start: 20080101
  6. M.V.I. [Concomitant]
     Indication: VITAMIN SUPPLEMENTATION
     Route: 048
     Dates: start: 20080101
  7. ASCORBIC ACID [Concomitant]
     Indication: VITAMIN SUPPLEMENTATION
     Route: 048
  8. FISH OIL [Concomitant]
     Indication: MINERAL SUPPLEMENTATION
     Route: 048

REACTIONS (3)
  - HYPOXIA [None]
  - MYOCARDIAL STRAIN [None]
  - PULMONARY ARTERY THROMBOSIS [None]
